FAERS Safety Report 5699987-9 (Version None)
Quarter: 2008Q2

REPORT INFORMATION
  Report Type: 
  Country: None (occurrence: None)
  Receive Date: 20080410
  Receipt Date: 20080401
  Transmission Date: 20081010
  Serious: Yes (Other)
  Sender: FDA-Public Use
  Company Number: PHHY2008CA04568

PATIENT
  Age: 79 Year
  Sex: Female

DRUGS (4)
  1. DIOVAN [Suspect]
     Indication: HYPERTENSION
     Dosage: 160 MG, QD
     Route: 048
     Dates: start: 20070922, end: 20071215
  2. CARBOCAL D [Concomitant]
     Dosage: UNK, BID
  3. ASAPHEN [Concomitant]
     Dosage: 80 MG/DAY
  4. CALCIUM CHANNEL BLOCKERS [Concomitant]
     Indication: HYPERTENSION

REACTIONS (4)
  - ASTHENIA [None]
  - DRUG INTOLERANCE [None]
  - HYPERHIDROSIS [None]
  - PAIN IN EXTREMITY [None]
